FAERS Safety Report 18322067 (Version 1)
Quarter: 2020Q3

REPORT INFORMATION
  Report Type: Spontaneous
  Country: CA (occurrence: CA)
  Receive Date: 20200929
  Receipt Date: 20200929
  Transmission Date: 20201103
  Serious: Yes (Other)
  Sender: FDA-Public Use
  Company Number: CA-ACCORD-203204

PATIENT
  Age: 9 Year
  Sex: Male

DRUGS (1)
  1. TACROLIMUS. [Suspect]
     Active Substance: TACROLIMUS
     Indication: LIVER TRANSPLANT

REACTIONS (4)
  - Drug resistance [Unknown]
  - Henoch-Schonlein purpura [Recovered/Resolved]
  - Immune-mediated adverse reaction [Recovered/Resolved]
  - Hypersensitivity vasculitis [Recovered/Resolved]
